FAERS Safety Report 14326400 (Version 2)
Quarter: 2017Q4

REPORT INFORMATION
  Report Type: Spontaneous
  Country: JP (occurrence: JP)
  Receive Date: 20171227
  Receipt Date: 20171230
  Transmission Date: 20180321
  Serious: Yes (Other)
  Sender: FDA-Public Use
  Company Number: JP-ROCHE-2044681

PATIENT
  Age: 40 Year
  Sex: Male

DRUGS (3)
  1. SOFOSBUVIR [Concomitant]
     Active Substance: SOFOSBUVIR
  2. RIBAVIRIN. [Concomitant]
     Active Substance: RIBAVIRIN
  3. PEGASYS [Suspect]
     Active Substance: PEGINTERFERON ALFA-2A
     Indication: CHRONIC HEPATITIS C
     Dosage: DOSAGE WAS UNCERTAIN
     Route: 058

REACTIONS (3)
  - Renal impairment [Unknown]
  - Cell marker increased [Unknown]
  - Platelet count decreased [Unknown]
